FAERS Safety Report 12074801 (Version 2)
Quarter: 2016Q2

REPORT INFORMATION
  Report Type: Report from Study
  Country: JP (occurrence: JP)
  Receive Date: 20160212
  Receipt Date: 20160419
  Transmission Date: 20160815
  Serious: Yes (Hospitalization, Other)
  Sender: FDA-Public Use
  Company Number: JP-009507513-1602JPN005315

PATIENT
  Age: 69 Year
  Sex: Female
  Weight: 53.2 kg

DRUGS (15)
  1. TEMOZOLOMIDE. [Suspect]
     Active Substance: TEMOZOLOMIDE
     Indication: ANAPLASTIC ASTROCYTOMA
     Dosage: 150 MG/M2, QD
     Route: 041
     Dates: start: 20150216, end: 20150220
  2. TEMOZOLOMIDE. [Suspect]
     Active Substance: TEMOZOLOMIDE
     Dosage: 200 MG/M2, QD
     Route: 041
     Dates: start: 20150601, end: 20150605
  3. TEMOZOLOMIDE. [Suspect]
     Active Substance: TEMOZOLOMIDE
     Dosage: 200 MG/M2, QD
     Route: 041
     Dates: start: 20150804, end: 20150808
  4. TEMOZOLOMIDE. [Suspect]
     Active Substance: TEMOZOLOMIDE
     Dosage: 200 MG/M2, QD
     Route: 041
     Dates: start: 20150708, end: 20150712
  5. TEMODAL [Suspect]
     Active Substance: TEMOZOLOMIDE
     Indication: ANAPLASTIC ASTROCYTOMA
     Dosage: 75 MG/M2, QD
     Route: 048
     Dates: start: 20141112, end: 20141226
  6. TEMOZOLOMIDE. [Suspect]
     Active Substance: TEMOZOLOMIDE
     Dosage: 200 MG/M2, QD
     Route: 041
     Dates: start: 20150316, end: 20150316
  7. TEMOZOLOMIDE. [Suspect]
     Active Substance: TEMOZOLOMIDE
     Dosage: 200 MG/M2, QD
     Route: 041
     Dates: start: 20151006, end: 20151010
  8. GRANISETRON HYDROCHLORIDE. [Concomitant]
     Active Substance: GRANISETRON HYDROCHLORIDE
     Indication: PROPHYLAXIS
     Dosage: UNK (DAILY DOSE UNKNOWN)
     Route: 041
     Dates: start: 20150216
  9. ATORVASTATIN CALCIUM. [Concomitant]
     Active Substance: ATORVASTATIN CALCIUM
     Dosage: DAILY DOSE UNKNOWN
     Route: 048
  10. TEMOZOLOMIDE. [Suspect]
     Active Substance: TEMOZOLOMIDE
     Dosage: 200 MG/M2, QD
     Route: 041
     Dates: start: 20150901, end: 20150905
  11. MAGMITT [Concomitant]
     Active Substance: MAGNESIUM OXIDE
     Indication: PROPHYLAXIS
     Dosage: UNK (FORMULATION: POR) (DAILY DOSE UNKNOWN)
     Route: 048
  12. TEMOZOLOMIDE. [Suspect]
     Active Substance: TEMOZOLOMIDE
     Dosage: 200 MG/M2, QD
     Route: 041
     Dates: start: 20151103, end: 20151107
  13. TEMOZOLOMIDE. [Suspect]
     Active Substance: TEMOZOLOMIDE
     Dosage: 200 MG/M2, QD
     Route: 041
     Dates: start: 20151201, end: 20151205
  14. LIXIANA [Concomitant]
     Active Substance: EDOXABAN TOSILATE MONOHYDRATE
     Dosage: UNK,  (DAILY DOSE UNKNOWN)
     Route: 048
  15. TEMOZOLOMIDE. [Suspect]
     Active Substance: TEMOZOLOMIDE
     Dosage: 200 MG/M2, QD
     Route: 041
     Dates: start: 20160105, end: 20160109

REACTIONS (2)
  - Seizure [Recovering/Resolving]
  - Drug eruption [Recovered/Resolved]

NARRATIVE: CASE EVENT DATE: 20150316
